FAERS Safety Report 6037797-3 (Version None)
Quarter: 2009Q1

REPORT INFORMATION
  Report Type: 
  Country: None (occurrence: None)
  Receive Date: 20090113
  Receipt Date: 20081230
  Transmission Date: 20090719
  Serious: Yes (Other)
  Sender: FDA-Public Use
  Company Number: IPS_01335_2008

PATIENT
  Age: 64 Year
  Sex: Male

DRUGS (5)
  1. APO-GO (APO-GO - APOMORPHINE HYDROCHLORIDE) [Suspect]
     Indication: PARKINSON'S DISEASE
     Dosage: 50 MG PER  DAY FOR SUBCUTANEOUS
     Route: 058
     Dates: start: 20060101
  2. MADOPAR/00349201/ [Concomitant]
  3. DETRUSITOL/01350202/ [Concomitant]
  4. FEXOFENADINE [Concomitant]
  5. TEMAZEPAM [Concomitant]

REACTIONS (5)
  - HYPOTENSION [None]
  - JOINT SWELLING [None]
  - RASH GENERALISED [None]
  - RASH PAPULAR [None]
  - RASH PRURITIC [None]
